FAERS Safety Report 6318508-0 (Version None)
Quarter: 2009Q3

REPORT INFORMATION
  Report Type: 
  Country: None (occurrence: None)
  Receive Date: 20090821
  Receipt Date: 20090810
  Transmission Date: 20100115
  Serious: Yes (Other)
  Sender: FDA-Public Use
  Company Number: US-PFIZER INC-2009235937

PATIENT
  Sex: Female
  Weight: 89.342 kg

DRUGS (6)
  1. GEODON [Suspect]
     Indication: BIPOLAR I DISORDER
     Dosage: 80 MG, 1X/DAY
     Route: 048
     Dates: start: 20090414
  2. METFORMIN HCL [Suspect]
     Dosage: 500 MG, 3X/DAY
     Route: 048
  3. TRAZODONE HCL [Suspect]
     Dosage: 50 MG, 1X/DAY AS NEEDED
     Route: 048
  4. MONTELUKAST [Suspect]
  5. CYMBALTA [Suspect]
     Dosage: 60 MG, 1X/DAY
     Route: 048
  6. TOPAMAX [Suspect]
     Dosage: 150 MG, 1X/DAY
     Route: 048

REACTIONS (1)
  - ABORTION SPONTANEOUS [None]
